FAERS Safety Report 5515479-1 (Version None)
Quarter: 2007Q4

REPORT INFORMATION
  Report Type: 
  Country: None (occurrence: None)
  Receive Date: 20071113
  Receipt Date: 20070227
  Transmission Date: 20080405
  Serious: No
  Sender: FDA-Public Use
  Company Number: A0641190A

PATIENT
  Age: 56 Year
  Sex: Female

DRUGS (8)
  1. COREG [Suspect]
     Indication: HYPERTENSION
     Dosage: 12.5MG TWICE PER DAY
     Route: 048
     Dates: start: 20070220
  2. HYDROCHLOROTHIAZIDE [Concomitant]
  3. GLUCOTROL [Concomitant]
  4. DIAVAN [Concomitant]
  5. POTASSIUM CHLORIDE [Concomitant]
  6. FISH OIL [Concomitant]
  7. GLUCOSAMINE [Concomitant]
  8. ESTROGEN [Concomitant]

REACTIONS (1)
  - DYSPNOEA [None]
